FAERS Safety Report 5289696-2 (Version None)
Quarter: 2007Q2

REPORT INFORMATION
  Report Type: 
  Country: None (occurrence: None)
  Receive Date: 20070406
  Receipt Date: 20070323
  Transmission Date: 20071010
  Serious: Yes (Hospitalization)
  Sender: FDA-Public Use
  Company Number: IE-GENENTECH-239400

PATIENT
  Sex: Female

DRUGS (2)
  1. HERCEPTIN [Suspect]
     Indication: BREAST CANCER
     Dosage: 6 MG/KG, UNK
     Route: 042
     Dates: start: 20070212
  2. CAPECITABINE [Suspect]
     Indication: BREAST CANCER
     Dosage: 1250 MG/M2, UNK
     Route: 048
     Dates: start: 20070212, end: 20070305

REACTIONS (2)
  - INFECTION [None]
  - PALMAR-PLANTAR ERYTHRODYSAESTHESIA SYNDROME [None]
